FAERS Safety Report 20025683 (Version 2)
Quarter: 2022Q1

REPORT INFORMATION
  Report Type: Report from Study
  Country: IT (occurrence: IT)
  Receive Date: 20211102
  Receipt Date: 20220211
  Transmission Date: 20220423
  Serious: Yes (Other)
  Sender: FDA-Public Use
  Company Number: IT-VER-202100029

PATIENT
  Age: 66 Year
  Sex: Male

DRUGS (9)
  1. TRIPTORELIN PAMOATE [Suspect]
     Active Substance: TRIPTORELIN PAMOATE
     Indication: Salivary gland cancer
     Route: 030
     Dates: start: 20210901, end: 20210923
  2. KETOROLAC [Concomitant]
     Active Substance: KETOROLAC TROMETHAMINE
     Indication: Pain
     Route: 065
     Dates: start: 20211014
  3. OMEPRAZOLE [Concomitant]
     Active Substance: OMEPRAZOLE
     Route: 065
  4. DEXAMETHASONE [Concomitant]
     Active Substance: DEXAMETHASONE
     Indication: Pain
     Route: 048
  5. TRAMADOL HYDROCHLORIDE [Concomitant]
     Active Substance: TRAMADOL HYDROCHLORIDE
     Route: 065
  6. BICALUTAMIDE [Suspect]
     Active Substance: BICALUTAMIDE
     Indication: Salivary gland cancer
     Route: 048
     Dates: start: 20210825, end: 20211014
  7. GABAPENTIN [Concomitant]
     Active Substance: GABAPENTIN
     Route: 048
  8. PACLITAXEL [Suspect]
     Active Substance: PACLITAXEL
     Indication: Salivary gland cancer
     Route: 042
     Dates: start: 20210105, end: 20210428
  9. CARBOPLATIN [Suspect]
     Active Substance: CARBOPLATIN
     Route: 042
     Dates: start: 20210105, end: 20210428

REACTIONS (1)
  - Respiratory failure [Not Recovered/Not Resolved]
